FAERS Safety Report 9155449 (Version 1)
Quarter: 2013Q1

REPORT INFORMATION
  Report Type: Spontaneous
  Country: US (occurrence: US)
  Receive Date: 20130311
  Receipt Date: 20130311
  Transmission Date: 20140127
  Serious: No
  Sender: FDA-Public Use
  Company Number: US-009507513-1303USA001418

PATIENT
  Age: 58 Year
  Sex: Male

DRUGS (4)
  1. BOCEPREVIR [Suspect]
     Indication: HEPATITIS C
  2. PEGINTERFERON [Suspect]
     Indication: HEPATITIS C
     Dosage: 180 MICROGRAM, QW,INJECTION
     Route: 058
  3. RIBAVIRIN [Suspect]
     Indication: HEPATITIS C
     Dosage: 1200MG, QD
     Route: 048
  4. TELAPREVIR [Suspect]
     Indication: CHRONIC HEPATITIS C
     Dosage: 750 MG, Q8H

REACTIONS (1)
  - Anaemia [Unknown]
